FAERS Safety Report 17097781 (Version 1)
Quarter: 2019Q4

REPORT INFORMATION
  Report Type: Spontaneous
  Country: US (occurrence: US)
  Receive Date: 20191105
  Receipt Date: 20191105
  Transmission Date: 20200122
  Serious: Yes (Hospitalization)
  Sender: FDA-Public Use
  Company Number: None

PATIENT
  Age: 58 Year
  Sex: Female

DRUGS (5)
  1. SIMPONI [Suspect]
     Active Substance: GOLIMUMAB
     Indication: RHEUMATOID ARTHRITIS
     Route: 058
     Dates: start: 20160805
  2. FOLIC ACID. [Concomitant]
     Active Substance: FOLIC ACID
  3. TRAMADOL. [Concomitant]
     Active Substance: TRAMADOL
  4. SULFASALAZIE [Concomitant]
     Indication: RHEUMATOID ARTHRITIS
  5. METHOTREXATE. [Concomitant]
     Active Substance: METHOTREXATE

REACTIONS (2)
  - Vaginal cyst [None]
  - Therapy cessation [None]

NARRATIVE: CASE EVENT DATE: 201910
